FAERS Safety Report 4802771-9 (Version None)
Quarter: 2005Q4

REPORT INFORMATION
  Report Type: 
  Country: None (occurrence: None)
  Receive Date: 20051017
  Receipt Date: 20051017
  Transmission Date: 20060501
  Serious: Yes (Hospitalization)
  Sender: FDA-Public Use
  Company Number: None

PATIENT
  Age: 89 Year
  Sex: Male

DRUGS (7)
  1. ALLOPURINOL [Suspect]
     Dosage: 100MG PO QD
     Route: 048
     Dates: start: 20050429, end: 20050721
  2. AZATHIOPRINE [Suspect]
     Dosage: 50MG PO QD
     Route: 048
     Dates: start: 20040101, end: 20050721
  3. COLCHICINE [Concomitant]
  4. LISINOPRIL [Concomitant]
  5. AZATHIOPRINE [Concomitant]
  6. FELODIPINE [Concomitant]
  7. METHYLCELLULOSE [Concomitant]

REACTIONS (1)
  - HAEMATOCRIT DECREASED [None]
